FAERS Safety Report 9570918 (Version 3)
Quarter: 2013Q4

REPORT INFORMATION
  Report Type: Spontaneous
  Country: IT (occurrence: IT)
  Receive Date: 20131001
  Receipt Date: 20131203
  Transmission Date: 20140711
  Serious: Yes (Other)
  Sender: FDA-Public Use
  Company Number: IT-ACCORD-019639

PATIENT
  Age: 59 Year
  Sex: Female
  Weight: 60 kg

DRUGS (5)
  1. NAVOBAN [Concomitant]
     Route: 042
     Dates: start: 20130129, end: 20130312
  2. FARMORUBICINA [Suspect]
     Indication: BREAST CANCER
     Route: 040
     Dates: start: 20130129, end: 20130312
  3. ENDOXAN [Suspect]
     Indication: BREAST CANCER
     Route: 042
     Dates: start: 20130129, end: 20130312
  4. SOLDESAM [Concomitant]
     Route: 042
     Dates: start: 20130129, end: 20130312
  5. DOCETAXEL [Suspect]
     Indication: BREAST CANCER
     Route: 042
     Dates: start: 20130129, end: 20130312

REACTIONS (11)
  - Asthenia [Unknown]
  - Dyspnoea [Unknown]
  - Nail discolouration [Unknown]
  - Nausea [Unknown]
  - Stomatitis [Unknown]
  - Vomiting [Unknown]
  - Astringent therapy [Unknown]
  - Pain in extremity [Unknown]
  - Hearing impaired [Unknown]
  - Dry mouth [Unknown]
  - Formication [Unknown]
